FAERS Safety Report 7427643-5 (Version None)
Quarter: 2011Q1

REPORT INFORMATION
  Report Type: 
  Country: None (occurrence: None)
  Receive Date: 20110302
  Receipt Date: 20110114
  Transmission Date: 20110831
  Serious: No
  Sender: FDA-Public Use
  Company Number: 018374

PATIENT
  Sex: Female

DRUGS (2)
  1. CIMZIA [Suspect]
  2. CIMZIA [Suspect]
     Indication: CROHN'S DISEASE
     Dosage: (SUBCUTANEOUS), (SUBCUTANEOUS)
     Route: 058
     Dates: start: 20100715

REACTIONS (10)
  - OROPHARYNGEAL PAIN [None]
  - FAECES HARD [None]
  - FATIGUE [None]
  - FUNGAL INFECTION [None]
  - HAEMATOCHEZIA [None]
  - ABDOMINAL PAIN [None]
  - VOMITING [None]
  - MASS [None]
  - HEADACHE [None]
  - PAINFUL DEFAECATION [None]
